FAERS Safety Report 6199241-5 (Version None)
Quarter: 2009Q2

REPORT INFORMATION
  Report Type: 
  Country: None (occurrence: None)
  Receive Date: 20090522
  Receipt Date: 20090512
  Transmission Date: 20091009
  Serious: Yes (Hospitalization)
  Sender: FDA-Public Use
  Company Number: TR-ELI_LILLY_AND_COMPANY-TR200905004217

PATIENT
  Age: 64 Year

DRUGS (2)
  1. HUMALOG [Suspect]
     Indication: DIABETES MELLITUS
     Dosage: 24 U, 3/D
     Route: 058
     Dates: start: 20080801
  2. LANTUS [Concomitant]
     Indication: DIABETES MELLITUS
     Dosage: 28 U, EACH EVENING (AT NIGHT)
     Route: 065
     Dates: start: 20080801

REACTIONS (2)
  - BLOOD GLUCOSE DECREASED [None]
  - CARDIAC FAILURE [None]
